FAERS Safety Report 5163497-8 (Version None)
Quarter: 2006Q4

REPORT INFORMATION
  Report Type: 
  Country: None (occurrence: None)
  Receive Date: 20061124
  Receipt Date: 20061110
  Transmission Date: 20070319
  Serious: Yes (Other)
  Sender: FDA-Public Use
  Company Number: 2006139140

PATIENT
  Sex: Male

DRUGS (9)
  1. VIAGRA [Suspect]
     Indication: ERECTILE DYSFUNCTION
     Dosage: 100 MG (100 MG)
  2. LISINOPRIL [Concomitant]
  3. ZOCOR [Concomitant]
  4. ASPIRIN [Concomitant]
  5. MULTIVITAMIN [Concomitant]
  6. LESCOL [Concomitant]
  7. AVANDARYL (GLIMEPIRIDE, ROSIGLITAZONE MALEATE) [Concomitant]
  8. PROTONIX [Concomitant]
  9. TARKA [Concomitant]

REACTIONS (4)
  - AORTIC VALVE REPLACEMENT [None]
  - DRUG EFFECT DECREASED [None]
  - FLUSHING [None]
  - HEADACHE [None]
